FAERS Safety Report 23830418 (Version 2)
Quarter: 2024Q2

REPORT INFORMATION
  Report Type: Spontaneous
  Country: IR (occurrence: IR)
  Receive Date: 20240508
  Receipt Date: 20240509
  Transmission Date: 20240715
  Serious: Yes (Death, Other)
  Sender: FDA-Public Use
  Company Number: IR-Axellia-005165

PATIENT
  Age: 50 Year
  Sex: Male

DRUGS (7)
  1. COLISTIMETHATE SODIUM [Suspect]
     Active Substance: COLISTIMETHATE SODIUM
     Indication: Klebsiella infection
  2. TIGECYCLINE [Suspect]
     Active Substance: TIGECYCLINE
     Indication: Klebsiella infection
     Dosage: 50  MG IV EVERY 12  H
     Route: 042
  3. FLUCONAZOLE [Suspect]
     Active Substance: FLUCONAZOLE
     Indication: Fungal infection
     Dosage: 100 MG EVERY 12 H,
  4. ACYCLOVIR [Suspect]
     Active Substance: ACYCLOVIR
     Indication: Herpes zoster
  5. IMIPENEM [Suspect]
     Active Substance: IMIPENEM
     Indication: Evidence based treatment
     Dosage: 500 MG IV EVERY 12 H
     Route: 042
  6. MEROPENEM [Concomitant]
     Active Substance: MEROPENEM
     Indication: Herpes zoster
     Dosage: 500  MG IV EVERY 12  H
  7. DOXYCYCLINE [Concomitant]
     Active Substance: DOXYCYCLINE
     Indication: Klebsiella infection
     Dosage: 100  MG EVERY 12  H,

REACTIONS (2)
  - Drug resistance [Unknown]
  - Sepsis [Fatal]
